FAERS Safety Report 4742890-9 (Version None)
Quarter: 2005Q3

REPORT INFORMATION
  Report Type: 
  Country: None (occurrence: None)
  Receive Date: 20050804
  Receipt Date: 20050510
  Transmission Date: 20060218
  Serious: No
  Sender: FDA-Public Use
  Company Number: FACT0500285

PATIENT
  Age: 51 Year
  Sex: Female
  Weight: 81.6 kg

DRUGS (4)
  1. FACTIVE [Suspect]
     Indication: RESPIRATORY TRACT INFECTION BACTERIAL
     Dosage: ORAL
     Route: 048
     Dates: start: 20050315, end: 20050321
  2. ROBITUSSIN AC (CODEINE PHOSPHATE, GUAIFENESIN) [Concomitant]
  3. PREVACID [Concomitant]
  4. WELLBUTRIN [Concomitant]

REACTIONS (1)
  - RASH GENERALISED [None]
